FAERS Safety Report 16677932 (Version 3)
Quarter: 2019Q3

REPORT INFORMATION
  Report Type: Spontaneous
  Country: US (occurrence: US)
  Receive Date: 20190807
  Receipt Date: 20190826
  Transmission Date: 20191004
  Serious: No
  Sender: FDA-Public Use
  Company Number: US-PFIZER INC-2018327371

PATIENT
  Age: 56 Year
  Sex: Male
  Weight: 93 kg

DRUGS (2)
  1. LYRICA [Suspect]
     Active Substance: PREGABALIN
     Dosage: UNK
  2. LYRICA [Suspect]
     Active Substance: PREGABALIN
     Dosage: 225 MG, 2X/DAY
     Route: 048

REACTIONS (5)
  - Withdrawal syndrome [Unknown]
  - Drug ineffective [Unknown]
  - Intentional product use issue [Unknown]
  - Product dose omission [Unknown]
  - Malaise [Unknown]
